FAERS Safety Report 6036257-3 (Version None)
Quarter: 2009Q1

REPORT INFORMATION
  Report Type: 
  Country: None (occurrence: None)
  Receive Date: 20090113
  Receipt Date: 20090107
  Transmission Date: 20090719
  Serious: Yes (Other)
  Sender: FDA-Public Use
  Company Number: PHEH2004US00636

PATIENT

DRUGS (15)
  1. ZOMETA [Suspect]
     Indication: METASTASES TO BONE
     Dosage: 4 MG PER MONTH
     Route: 042
     Dates: start: 20011101, end: 20030301
  2. ZOMETA [Suspect]
     Indication: BREAST CANCER
  3. AREDIA [Suspect]
     Indication: METASTASES TO BONE
     Dosage: 90 MG PER MONTH
     Route: 042
     Dates: start: 20020524, end: 20020524
  4. LETROZOLE [Concomitant]
     Indication: BREAST CANCER
     Dosage: 2.5 MG, QD
     Route: 048
     Dates: start: 20011213, end: 20030214
  5. RETINOIDS FOR TREATMENT OF PSORIASIS [Concomitant]
     Indication: PSORIASIS
  6. ACCUPRIL [Concomitant]
     Indication: HYPERTENSION
  7. MAXZIDE [Concomitant]
     Indication: HYPERTENSION
  8. ZOLOFT [Concomitant]
     Indication: DEPRESSION
  9. VIOXX [Concomitant]
     Indication: BONE PAIN
  10. ATIVAN [Concomitant]
     Indication: ANXIETY
  11. AMARYL [Concomitant]
     Indication: DIABETES MELLITUS
  12. TAXOL [Concomitant]
  13. CYTOXAN [Concomitant]
  14. RADIATION THERAPY [Concomitant]
     Indication: BREAST CANCER
  15. DIOVAN [Concomitant]
     Indication: CARDIAC FAILURE

REACTIONS (11)
  - ABSCESS JAW [None]
  - BONE DISORDER [None]
  - DENTAL CARIES [None]
  - FISTULA [None]
  - INFECTION [None]
  - JAW OPERATION [None]
  - OSTEOMYELITIS [None]
  - OSTEONECROSIS [None]
  - PAIN [None]
  - RADIATION INJURY [None]
  - WOUND DRAINAGE [None]
